FAERS Safety Report 17631789 (Version 2)
Quarter: 2020Q2

REPORT INFORMATION
  Report Type: Spontaneous
  Country: US (occurrence: US)
  Receive Date: 20200406
  Receipt Date: 20200513
  Transmission Date: 20200713
  Serious: No
  Sender: FDA-Public Use
  Company Number: US-CELGENEUS-USA-20200310729

PATIENT
  Age: 19 Year
  Sex: Female

DRUGS (2)
  1. OTEZLA [Suspect]
     Active Substance: APREMILAST
     Indication: BEHCET^S SYNDROME
     Dosage: 60 MILLIGRAM
     Route: 048
     Dates: start: 20200313
  2. OTEZLA [Suspect]
     Active Substance: APREMILAST
     Indication: ORAL PAIN
     Dosage: 60 MILLIGRAM
     Route: 048
     Dates: start: 2020

REACTIONS (2)
  - Therapy non-responder [Unknown]
  - Behcet^s syndrome [Not Recovered/Not Resolved]

NARRATIVE: CASE EVENT DATE: 20200313
